FAERS Safety Report 6912184-1 (Version None)
Quarter: 2010Q3

REPORT INFORMATION
  Report Type: 
  Country: None (occurrence: None)
  Receive Date: 20100806
  Receipt Date: 20071205
  Transmission Date: 20110219
  Serious: No
  Sender: FDA-Public Use
  Company Number: US-PFIZER INC-2007103010

PATIENT
  Age: 75 Year
  Sex: Male

DRUGS (1)
  1. DETROL LA [Suspect]

REACTIONS (3)
  - CONSTIPATION [None]
  - NAUSEA [None]
  - SOMNOLENCE [None]
